FAERS Safety Report 6670954-1 (Version None)
Quarter: 2010Q2

REPORT INFORMATION
  Report Type: 
  Country: None (occurrence: None)
  Receive Date: 20100406
  Receipt Date: 20100406
  Transmission Date: 20101027
  Serious: Yes (Life-Threatening, Hospitalization)
  Sender: FDA-Public Use
  Company Number: None

PATIENT
  Age: 49 Year
  Sex: Male
  Weight: 154 kg

DRUGS (1)
  1. DOXYCYLINE HYCLATE [Suspect]
     Indication: FOLLICULITIS
     Dosage: 100 MG BID PO
     Route: 048
     Dates: start: 20100322, end: 20100328

REACTIONS (3)
  - ANGIOEDEMA [None]
  - HYPOPHAGIA [None]
  - SPEECH DISORDER [None]
